FAERS Safety Report 7178577-5 (Version None)
Quarter: 2010Q4

REPORT INFORMATION
  Report Type: 
  Country: None (occurrence: None)
  Receive Date: 20101221
  Receipt Date: 20101213
  Transmission Date: 20110411
  Serious: Yes (Hospitalization)
  Sender: FDA-Public Use
  Company Number: US-BIOGENIDEC-2010BI038642

PATIENT
  Age: 62 Year
  Sex: Female

DRUGS (4)
  1. AVONEX [Suspect]
     Indication: MULTIPLE SCLEROSIS
     Route: 030
     Dates: start: 20100101, end: 20101101
  2. AVONEX [Suspect]
     Route: 030
     Dates: start: 20070626
  3. AVONEX [Suspect]
     Route: 030
     Dates: start: 20100101, end: 20100101
  4. AVONEX [Suspect]

REACTIONS (5)
  - BALANCE DISORDER [None]
  - CONCUSSION [None]
  - DRUG INEFFECTIVE [None]
  - FALL [None]
  - PRIMARY PROGRESSIVE MULTIPLE SCLEROSIS [None]
